FAERS Safety Report 13940268 (Version 2)
Quarter: 2017Q3

REPORT INFORMATION
  Report Type: Spontaneous
  Country: US (occurrence: US)
  Receive Date: 20170906
  Receipt Date: 20170915
  Transmission Date: 20171127
  Serious: Yes (Hospitalization, Other)
  Sender: FDA-Public Use
  Company Number: US-SAOL THERAPEUTICS-2017SAO01399

PATIENT
  Sex: Male

DRUGS (1)
  1. BACLOFEN. [Suspect]
     Active Substance: BACLOFEN
     Dosage: 124.85 ?G, \DAY
     Route: 037

REACTIONS (3)
  - Central nervous system infection [Unknown]
  - Catheter site erosion [Unknown]
  - Sepsis [Unknown]

NARRATIVE: CASE EVENT DATE: 2017
